FAERS Safety Report 6554639-8 (Version None)
Quarter: 2010Q1

REPORT INFORMATION
  Report Type: 
  Country: None (occurrence: None)
  Receive Date: 20100127
  Receipt Date: 20100118
  Transmission Date: 20100710
  Serious: Yes (Other)
  Sender: FDA-Public Use
  Company Number: NL-PFIZER INC-2010006606

PATIENT
  Sex: Female
  Weight: 74 kg

DRUGS (3)
  1. AROMASIN [Suspect]
     Indication: BREAST CANCER
     Dosage: UNK
     Dates: start: 20070101
  2. SYMBICORT [Concomitant]
     Indication: ASTHMA
     Dosage: UNK
  3. SERTRALINE [Concomitant]
     Dosage: UNK
     Dates: start: 20060101, end: 20090101

REACTIONS (2)
  - ENDOMETRIAL HYPERPLASIA [None]
  - WEIGHT INCREASED [None]
